FAERS Safety Report 25535120 (Version 1)
Quarter: 2025Q3

REPORT INFORMATION
  Report Type: Spontaneous
  Country: MY (occurrence: MY)
  Receive Date: 20250709
  Receipt Date: 20250709
  Transmission Date: 20251020
  Serious: Yes (Other)
  Sender: INCYTE
  Company Number: MY-002147023-NVSC2025MY106166

PATIENT

DRUGS (1)
  1. RUXOLITINIB [Suspect]
     Active Substance: RUXOLITINIB
     Indication: Acute myeloid leukaemia
     Dosage: 15 MG, BID
     Route: 065

REACTIONS (3)
  - Off label use [Unknown]
  - Acute myeloid leukaemia [Unknown]
  - Malignant neoplasm progression [Unknown]
